FAERS Safety Report 7275694-6 (Version None)
Quarter: 2011Q1

REPORT INFORMATION
  Report Type: 
  Country: None (occurrence: None)
  Receive Date: 20110204
  Receipt Date: 20090806
  Transmission Date: 20110831
  Serious: No
  Sender: FDA-Public Use
  Company Number: IS-ROCHE-482580

PATIENT
  Sex: Female

DRUGS (7)
  1. DIANE MITE [Concomitant]
     Indication: ACNE
     Dates: start: 20040101
  2. ROACCUTAN [Suspect]
     Indication: ACNE
     Dates: start: 20070119, end: 20070123
  3. ROACCUTAN [Suspect]
     Dosage: DOSE AND FREQUENCY REPORTED AS 20 MG X1.
     Dates: start: 20040201, end: 20040601
  4. DOXYCYCLIN [Concomitant]
     Indication: ACNE
     Dates: start: 20040101
  5. ROACCUTAN [Suspect]
     Dosage: DOSE AND FREQUENCY REPORTED AS 20 MG X 2.
     Dates: start: 20060601, end: 20060701
  6. DALACIN [Concomitant]
     Indication: ACNE
     Dosage: ROUTE: EXTERNAL
  7. DIANE MITE [Concomitant]
     Dates: start: 20060101

REACTIONS (2)
  - NORMAL NEWBORN [None]
  - NO ADVERSE EVENT [None]
